FAERS Safety Report 16629707 (Version 5)
Quarter: 2019Q3

REPORT INFORMATION
  Report Type: Report from Study
  Country: US (occurrence: US)
  Receive Date: 20190725
  Receipt Date: 20190925
  Transmission Date: 20191004
  Serious: Yes (Other)
  Sender: FDA-Public Use
  Company Number: US-PFIZER INC-2019191761

PATIENT
  Age: 52 Year
  Sex: Female

DRUGS (2)
  1. IBRANCE [Suspect]
     Active Substance: PALBOCICLIB
     Indication: BREAST CANCER FEMALE
     Dosage: 125 MG, CYCLIC (DAILY 21 DAYS ON AND 7 DAYS OFF)
     Route: 048
     Dates: start: 20190422
  2. FASLODEX [Suspect]
     Active Substance: FULVESTRANT
     Dosage: UNK

REACTIONS (26)
  - Influenza like illness [Recovering/Resolving]
  - Pain in jaw [Recovering/Resolving]
  - Neutropenia [Not Recovered/Not Resolved]
  - Nausea [Recovering/Resolving]
  - Cough [Unknown]
  - Headache [Recovering/Resolving]
  - Fatigue [Not Recovered/Not Resolved]
  - Pain [Recovering/Resolving]
  - Neoplasm progression [Unknown]
  - Bone marrow failure [Not Recovered/Not Resolved]
  - Toothache [Recovering/Resolving]
  - Eye swelling [Unknown]
  - Product dose omission [Unknown]
  - Oropharyngeal pain [Unknown]
  - Lymph node pain [Recovering/Resolving]
  - Sinus disorder [Unknown]
  - Stomatitis [Not Recovered/Not Resolved]
  - Sinus congestion [Recovering/Resolving]
  - Lymphadenopathy [Recovering/Resolving]
  - Leukopenia [Not Recovered/Not Resolved]
  - Rhinorrhoea [Recovering/Resolving]
  - Pyrexia [Unknown]
  - Constipation [Recovering/Resolving]
  - Hot flush [Unknown]
  - Insomnia [Unknown]
  - Lip ulceration [Unknown]

NARRATIVE: CASE EVENT DATE: 2019
